FAERS Safety Report 9928922 (Version 1)
Quarter: 2014Q1

REPORT INFORMATION
  Report Type: Spontaneous
  Country: US (occurrence: None)
  Receive Date: 20140221
  Receipt Date: 20140221
  Transmission Date: 20141002
  Serious: Yes (Death)
  Sender: FDA-Public Use
  Company Number: 1828486

PATIENT
  Age: 75 Year
  Sex: Male
  Weight: 115 kg

DRUGS (3)
  1. (DEXMEDETOMIDINE HYDROCHLORIDE) [Suspect]
     Indication: PRODUCT USED FOR UNKNOWN INDICATION
     Dosage: 360 GAMMA (1 DAY) INTRAVENOUS (NOT OTHERWISE SPECIFIED)
     Dates: start: 20130717, end: 20130718
  2. NORADRENALINE [Concomitant]
  3. (FUROSEMIDE) [Concomitant]

REACTIONS (6)
  - Hypotension [None]
  - Renal failure acute [None]
  - Cognitive disorder [None]
  - Septic shock [None]
  - Cardiac arrest [None]
  - Coma [None]
